FAERS Safety Report 8617268-8 (Version None)
Quarter: 2012Q3

REPORT INFORMATION
  Report Type: 
  Country: None (occurrence: None)
  Receive Date: 20120823
  Receipt Date: 20120815
  Transmission Date: 20120928
  Serious: No
  Sender: FDA-Public Use
  Company Number: US-ASTRAZENECA-2012SE57949

PATIENT
  Age: 61 Year
  Sex: Male

DRUGS (5)
  1. TOPROL-XL [Suspect]
     Route: 048
     Dates: start: 20110826
  2. IMDUR [Concomitant]
  3. NITROGLYCERIN [Concomitant]
  4. ASPIRIN [Concomitant]
  5. PLAVIX [Concomitant]

REACTIONS (5)
  - RADICULITIS [None]
  - ARTHRALGIA [None]
  - NEURITIS [None]
  - PAIN IN EXTREMITY [None]
  - PELVIC PAIN [None]
